FAERS Safety Report 9438093 (Version 1)
Quarter: 2013Q3

REPORT INFORMATION
  Report Type: Spontaneous
  Country: US (occurrence: US)
  Receive Date: 20130802
  Receipt Date: 20130802
  Transmission Date: 20140515
  Serious: No
  Sender: FDA-Public Use
  Company Number: US-BRISTOL-MYERS SQUIBB COMPANY-16825606

PATIENT
  Age: 92 Year
  Sex: Female
  Weight: 54.42 kg

DRUGS (4)
  1. COUMADIN [Suspect]
     Indication: THROMBOSIS
     Dates: start: 201207
  2. COUMADIN [Suspect]
     Indication: MYOCARDIAL INFARCTION
     Dates: start: 201207
  3. WARFARIN SODIUM [Suspect]
  4. CLONIDINE [Concomitant]

REACTIONS (4)
  - Rhinalgia [Unknown]
  - Oral pain [Unknown]
  - Dysgeusia [Unknown]
  - Feeling abnormal [Unknown]
